FAERS Safety Report 4898117-0 (Version None)
Quarter: 2006Q1

REPORT INFORMATION
  Report Type: 
  Country: None (occurrence: None)
  Receive Date: 20060106
  Receipt Date: 20050922
  Transmission Date: 20060701
  Serious: No
  Sender: FDA-Public Use
  Company Number: 200511992BWH

PATIENT
  Sex: Male

DRUGS (2)
  1. LEVITRA [Suspect]
     Dosage: 10 MG TOTAL DAILY, ORAL; 20 MG, TOTAL DAILY, ORAL
     Route: 048
     Dates: start: 20050101
  2. LEVITRA [Suspect]
     Dosage: 10 MG TOTAL DAILY, ORAL; 20 MG, TOTAL DAILY, ORAL
     Route: 048
     Dates: start: 20050101

REACTIONS (3)
  - DRUG EFFECT DECREASED [None]
  - ERECTION INCREASED [None]
  - SPONTANEOUS PENILE ERECTION [None]
